FAERS Safety Report 8987313 (Version 1)
Quarter: 2012Q4

REPORT INFORMATION
  Report Type: 
  Country: IT (occurrence: IT)
  Receive Date: 20121226
  Receipt Date: 20121226
  Transmission Date: 20130627
  Serious: Yes (Other)
  Sender: FDA-Public Use
  Company Number: IT-ROCHE-1173865

PATIENT
  Age: 56 Year
  Sex: Female

DRUGS (3)
  1. ROCEFIN [Suspect]
     Indication: LOWER RESPIRATORY TRACT INFECTION
     Route: 030
     Dates: start: 20121202, end: 20121210
  2. PANTECTA [Concomitant]
     Route: 048
  3. CRESTOR [Concomitant]
     Indication: HYPERCHOLESTEROLAEMIA
     Route: 048

REACTIONS (2)
  - Hypersensitivity [Recovering/Resolving]
  - Laryngeal oedema [Recovering/Resolving]
